FAERS Safety Report 5761799-5 (Version None)
Quarter: 2008Q2

REPORT INFORMATION
  Report Type: 
  Country: None (occurrence: None)
  Receive Date: 20080606
  Receipt Date: 20080530
  Transmission Date: 20081010
  Serious: Yes (Hospitalization)
  Sender: FDA-Public Use
  Company Number: FR-PFIZER INC-2008046561

PATIENT
  Sex: Female

DRUGS (8)
  1. SULFASALAZINE [Suspect]
     Indication: RHEUMATOID ARTHRITIS
     Route: 048
     Dates: start: 20070713, end: 20070825
  2. AMOXICILLIN [Concomitant]
  3. ALL OTHER THERAPEUTIC PRODUCTS [Concomitant]
  4. KETOPROFEN [Concomitant]
  5. LANSOPRAZOLE [Concomitant]
  6. ORAL CONTRACEPTIVE NOS [Concomitant]
     Route: 048
  7. LEVOCETIRIZINE DIHYDROCHLORIDE [Concomitant]
  8. ACETAMINOPHEN [Concomitant]

REACTIONS (1)
  - TOXIC EPIDERMAL NECROLYSIS [None]
